FAERS Safety Report 11179267 (Version 1)
Quarter: 2015Q2

REPORT INFORMATION
  Report Type: Spontaneous
  Country: US (occurrence: US)
  Receive Date: 20150610
  Receipt Date: 20150610
  Transmission Date: 20150821
  Serious: No
  Sender: FDA-Public Use
  Company Number: US-009507513-1506USA004053

PATIENT
  Age: 14 Year
  Sex: Female
  Weight: 54.88 kg

DRUGS (4)
  1. INTUNIV [Concomitant]
     Active Substance: GUANFACINE HYDROCHLORIDE
  2. VISTARIL [Concomitant]
     Active Substance: HYDROXYZINE PAMOATE
  3. ZOLAPHEN [Concomitant]
  4. NEXPLANON [Suspect]
     Active Substance: ETONOGESTREL
     Indication: SEXUALLY ACTIVE
     Dosage: 1 DF, FOR 3 YEARS
     Route: 059
     Dates: start: 20140329

REACTIONS (1)
  - Device breakage [Unknown]

NARRATIVE: CASE EVENT DATE: 201504
